FAERS Safety Report 17706783 (Version 1)
Quarter: 2020Q2

REPORT INFORMATION
  Report Type: Spontaneous
  Country: US (occurrence: US)
  Receive Date: 20200424
  Receipt Date: 20200424
  Transmission Date: 20200714
  Serious: Yes (Other)
  Sender: FDA-Public Use
  Company Number: US-PURDUE-USA-2020-0151890

PATIENT

DRUGS (4)
  1. HYDROCODONE [Suspect]
     Active Substance: HYDROCODONE
     Indication: PRODUCT USED FOR UNKNOWN INDICATION
     Dosage: UNK
     Route: 065
     Dates: start: 19980830, end: 20150325
  2. OXYCODONE HYDROCHLORIDE (SIMILAR TO NDA 22-272) [Suspect]
     Active Substance: OXYCODONE HYDROCHLORIDE
     Indication: PRODUCT USED FOR UNKNOWN INDICATION
     Dosage: UNK
     Route: 048
     Dates: start: 19980830, end: 20150325
  3. OXYCODONE AND ACETAMINOPHEN [Suspect]
     Active Substance: ACETAMINOPHEN\OXYCODONE HYDROCHLORIDE
     Indication: PRODUCT USED FOR UNKNOWN INDICATION
     Dosage: UNK
     Route: 065
     Dates: start: 19980830, end: 20150325
  4. OXYCONTIN [Suspect]
     Active Substance: OXYCODONE HYDROCHLORIDE
     Indication: PRODUCT USED FOR UNKNOWN INDICATION
     Dosage: UNK
     Route: 048
     Dates: start: 19980830, end: 20150325

REACTIONS (38)
  - Infertility [Unknown]
  - Anaemia [Unknown]
  - Somnolence [Unknown]
  - Headache [Unknown]
  - Nausea [Unknown]
  - Fatigue [Unknown]
  - Abdominal pain upper [Unknown]
  - Drug dependence [Unknown]
  - Urinary retention [Unknown]
  - Urinary tract infection [Unknown]
  - Asthenia [Unknown]
  - Confusional state [Unknown]
  - Rash [Unknown]
  - Amblyopia [Unknown]
  - Photosensitivity reaction [Unknown]
  - Anxiety [Unknown]
  - Cardiomegaly [Unknown]
  - Sleep apnoea syndrome [Unknown]
  - Migraine [Unknown]
  - Dry mouth [Unknown]
  - Arthritis [Unknown]
  - Intestinal obstruction [Unknown]
  - Drug withdrawal syndrome [Unknown]
  - Arthralgia [Unknown]
  - Dizziness [Unknown]
  - Blood glucose increased [Unknown]
  - Heart rate increased [Unknown]
  - Constipation [Unknown]
  - Dysuria [Unknown]
  - Nervousness [Unknown]
  - Palpitations [Unknown]
  - Insomnia [Unknown]
  - Lacrimation increased [Unknown]
  - Irritable bowel syndrome [Unknown]
  - Pyrexia [Unknown]
  - Pruritus [Unknown]
  - Depression [Unknown]
  - Dyspepsia [Unknown]
